FAERS Safety Report 7953368-3 (Version None)
Quarter: 2011Q4

REPORT INFORMATION
  Report Type: 
  Country: None (occurrence: None)
  Receive Date: 20111202
  Receipt Date: 20111125
  Transmission Date: 20120403
  Serious: Yes (Hospitalization)
  Sender: FDA-Public Use
  Company Number: IE-BIOGENIDEC-2011BI042594

PATIENT
  Sex: Female

DRUGS (2)
  1. AVONEX [Suspect]
     Route: 030
     Dates: start: 20111026
  2. AVONEX [Suspect]
     Indication: PRODUCT USED FOR UNKNOWN INDICATION
     Route: 030
     Dates: start: 20011014, end: 20111002

REACTIONS (14)
  - NECK PAIN [None]
  - TRAUMATIC LUNG INJURY [None]
  - EYE PAIN [None]
  - NERVOUSNESS [None]
  - PNEUMOTHORAX [None]
  - SKELETAL INJURY [None]
  - VOMITING [None]
  - ASTHENIA [None]
  - HYPERACUSIS [None]
  - MUSCULAR WEAKNESS [None]
  - SPLENIC RUPTURE [None]
  - HAEMOTHORAX [None]
  - ROAD TRAFFIC ACCIDENT [None]
  - INFLUENZA LIKE ILLNESS [None]
